FAERS Safety Report 20890826 (Version 2)
Quarter: 2022Q2

REPORT INFORMATION
  Report Type: Spontaneous
  Country: JP (occurrence: JP)
  Receive Date: 20220530
  Receipt Date: 20220610
  Transmission Date: 20220721
  Serious: No
  Sender: FDA-Public Use
  Company Number: JP-GSKNCCC-Case-01496583_AE-58282

PATIENT

DRUGS (10)
  1. SOTROVIMAB [Suspect]
     Active Substance: SOTROVIMAB
     Indication: COVID-19
     Dosage: 500 MG/ 50 ML/  30 MIN, SINGLE DOSE
     Dates: start: 20220520, end: 20220520
  2. SEIBULE TABLETS [Concomitant]
     Dosage: 3T DIVIDED INTO 3 DOSES.  JUST BEFORE EACH MEAL, 150MG/DAY, NUMBER OF ADMINISTRATION: UNKNOWN
  3. TRAZENTA TABLETS [Concomitant]
     Dosage: 1T ONCE AFTER BREAKFAST, 5MG/DAY, NUMBER OF ADMINISTRATION: UNKNOWN
  4. CALCITRIOL [Concomitant]
     Active Substance: CALCITRIOL
     Dosage: 1CAP ONCE M 0.5?G/DAY, NUMBER OF ADMINISTRATION: UNKNOWN
  5. CALCIUM POLYSTYRENE SULFONATE [Concomitant]
     Active Substance: CALCIUM POLYSTYRENE SULFONATE
     Dosage: 2 PACKETS DIVIDED INTO 2 DOSES, AFTER LUNCH AND SUPPER, 50G/DAY, NUMBER OF ADMINISTRATION: UNKNOWN
  6. LANTHANUM CARBONATE [Concomitant]
     Active Substance: LANTHANUM CARBONATE
     Dosage: 6 TABLETS DIVIDED INTO 3 DOSES, JUST AFTER EACH MEAL, 1500MG/DAY, NUMBER OF ADMINISTRATION: UNKNOWN
  7. TELMISARTAN [Concomitant]
     Active Substance: TELMISARTAN
     Dosage: 1T ONCE AFTER BREAKFAST, 20MG/DAY, NUMBER OF ADMINISTRATION: UNKNOWN
  8. LANTUS SOLOSTAR [Concomitant]
     Active Substance: INSULIN GLARGINE
     Dosage: JUST BEFORE BREAKFAST, 10 UNITS, ONCE DAILY
  9. ISODINE SUGAR [Concomitant]
     Indication: Limb injury
     Dosage: UNK, 1 TO 2 TIMES DAILY, APPLIED ON THE WOUND (RIGHT FOOT)
  10. MINOCYCLINE HYDROCHLORIDE CAPSULES [Concomitant]
     Dosage: 2CAP DIVIDED INTO 2 DOSES AFTER BREAKFAST AND SUPPER, 200MG/DAY, NUMBER OF ADMINISTRATION: UNKNOWN

REACTIONS (2)
  - Pruritus [Recovered/Resolved]
  - Infusion related reaction [Recovered/Resolved]

NARRATIVE: CASE EVENT DATE: 20220520
